FAERS Safety Report 16525269 (Version 1)
Quarter: 2019Q3

REPORT INFORMATION
  Report Type: Spontaneous
  Country: US (occurrence: US)
  Receive Date: 20190703
  Receipt Date: 20190703
  Transmission Date: 20191004
  Serious: No
  Sender: FDA-Public Use
  Company Number: US-TAKEDA-2019TUS040079

PATIENT
  Sex: Male
  Weight: 21.32 kg

DRUGS (1)
  1. ENTYVIO [Suspect]
     Active Substance: VEDOLIZUMAB
     Indication: CROHN^S DISEASE
     Dosage: UNK
     Route: 063
     Dates: start: 201511

REACTIONS (2)
  - No adverse event [Unknown]
  - Exposure via breast milk [Unknown]
